FAERS Safety Report 7403624-2 (Version None)
Quarter: 2011Q2

REPORT INFORMATION
  Report Type: 
  Country: None (occurrence: None)
  Receive Date: 20110408
  Receipt Date: 20110329
  Transmission Date: 20111010
  Serious: Yes (Congenital Anomaly)
  Sender: FDA-Public Use
  Company Number: PHHY2010JP48383

PATIENT

DRUGS (1)
  1. DIOVAN [Suspect]
     Route: 064

REACTIONS (2)
  - RENAL FAILURE [None]
  - DRUG EXPOSURE DURING PREGNANCY [None]
